FAERS Safety Report 12954371 (Version 1)
Quarter: 2016Q4

REPORT INFORMATION
  Report Type: Spontaneous
  Country: US (occurrence: US)
  Receive Date: 20161117
  Receipt Date: 20161117
  Transmission Date: 20170207
  Serious: No
  Sender: FDA-Public Use
  Company Number: None

PATIENT
  Age: 60 Year
  Sex: Female

DRUGS (1)
  1. AMINOLEVULINIC ACID [Suspect]
     Active Substance: AMINOLEVULINIC ACID
     Indication: SKIN CANCER
     Dosage: 1 UNITS EVERY DAY TOP
     Route: 061
     Dates: start: 20160425, end: 20160715

REACTIONS (6)
  - Photosensitivity reaction [None]
  - Skin irritation [None]
  - Urticaria [None]
  - Pruritus [None]
  - Hypersensitivity [None]
  - Rash [None]

NARRATIVE: CASE EVENT DATE: 20160715
